FAERS Safety Report 23871004 (Version 2)
Quarter: 2024Q3

REPORT INFORMATION
  Report Type: Spontaneous
  Country: IT (occurrence: IT)
  Receive Date: 20240518
  Receipt Date: 20240730
  Transmission Date: 20241016
  Serious: Yes (Hospitalization)
  Sender: AUROBINDO
  Company Number: IT-MINISAL02-983977

PATIENT
  Age: 26 Year
  Sex: Female

DRUGS (5)
  1. OLANZAPINE [Suspect]
     Active Substance: OLANZAPINE
     Indication: Product used for unknown indication
     Dosage: 2.5 MILLIGRAM, TWO TIMES A DAY
     Route: 048
  2. PAROXETINE [Suspect]
     Active Substance: PAROXETINE
     Indication: Product used for unknown indication
     Dosage: 10 MILLIGRAM, ONCE A DAY
     Route: 048
     Dates: start: 20240405, end: 20240424
  3. DULOXETINE [Suspect]
     Active Substance: DULOXETINE
     Indication: Product used for unknown indication
     Dosage: 30 MILLIGRAM, ONCE A DAY
     Route: 048
     Dates: start: 20240424
  4. ENOXAPARIN SODIUM [Concomitant]
     Active Substance: ENOXAPARIN SODIUM
     Indication: Product used for unknown indication
     Dosage: 2000 INTERNATIONAL UNIT, ONCE A DAY
     Route: 058
  5. LYRICA [Concomitant]
     Active Substance: PREGABALIN
     Indication: Product used for unknown indication
     Dosage: 25 MILLIGRAM, ONCE A DAY
     Route: 048

REACTIONS (1)
  - Liver disorder [Recovered/Resolved]

NARRATIVE: CASE EVENT DATE: 20240422
